FAERS Safety Report 9955206 (Version 2)
Quarter: 2014Q1

REPORT INFORMATION
  Report Type: Spontaneous
  Country: US (occurrence: US)
  Receive Date: 20140304
  Receipt Date: 20140304
  Transmission Date: 20141002
  Serious: Yes (Death)
  Sender: FDA-Public Use
  Company Number: US-GE HEALTHCARE MEDICAL DIAGNOSTICS-OSCN-PR-0710S-0391

PATIENT
  Sex: Male

DRUGS (5)
  1. OMNISCAN [Suspect]
     Indication: BACK PAIN
     Route: 042
     Dates: start: 20060422, end: 20060422
  2. OMNISCAN [Suspect]
     Indication: ASTHENIA
     Route: 042
     Dates: start: 20060426, end: 20060426
  3. OMNISCAN [Suspect]
     Indication: ARTHRALGIA
  4. OMNISCAN [Suspect]
     Indication: EFFUSION
  5. OMNISCAN [Suspect]
     Indication: INFECTION

REACTIONS (1)
  - Nephrogenic systemic fibrosis [Fatal]
